FAERS Safety Report 9128237 (Version 1)
Quarter: 2013Q1

REPORT INFORMATION
  Report Type: Spontaneous
  Country: US (occurrence: US)
  Receive Date: 20130228
  Receipt Date: 20130228
  Transmission Date: 20140127
  Serious: Yes (Other)
  Sender: FDA-Public Use
  Company Number: US-TEVA-388143USA

PATIENT
  Sex: Female

DRUGS (1)
  1. CLONAZEPAM [Suspect]
     Dates: end: 2007

REACTIONS (5)
  - Loss of consciousness [Unknown]
  - Convulsion [Unknown]
  - Tremor [Unknown]
  - Insomnia [Unknown]
  - Drug prescribing error [Unknown]
